FAERS Safety Report 5238651-7 (Version None)
Quarter: 2007Q1

REPORT INFORMATION
  Report Type: 
  Country: None (occurrence: None)
  Receive Date: 20070214
  Receipt Date: 20070214
  Transmission Date: 20070707
  Serious: No
  Sender: FDA-Public Use
  Company Number: None

PATIENT
  Age: 50 Year
  Sex: Male
  Weight: 116.8 kg

DRUGS (16)
  1. HEPARIN [Suspect]
     Indication: INTRAVENOUS CATHETER MANAGEMENT
     Dosage: 20 UNITS PRN
  2. HYDROCODONE 5 / ACETAMINOPHEN 500 MG [Concomitant]
  3. POTASSIUM CHLORIDE TAB, SA [Concomitant]
  4. MAGNESIUM OXIDE TAB [Concomitant]
  5. PROCHLORPERAZINE INJ [Concomitant]
  6. FERROUS SULFATE TAB [Concomitant]
  7. CYANOCOBALAMIN [Concomitant]
  8. --OLACTONE [Concomitant]
  9. --APINE [Concomitant]
  10. BUSPIRONE HCL [Concomitant]
  11. MULTI-VITAMIN [Concomitant]
  12. BUMETANIDE [Concomitant]
  13. ASCORBIC ACID [Concomitant]
  14. INSULIN REG HUMAN 100 UNIT / ML NOVOLIN R [Concomitant]
  15. DEXAMETHASONE [Concomitant]
  16. VANCOMYCIN HCL [Concomitant]

REACTIONS (1)
  - HEPARIN-INDUCED THROMBOCYTOPENIA [None]
